FAERS Safety Report 9537043 (Version 2)
Quarter: 2013Q4

REPORT INFORMATION
  Report Type: Spontaneous
  Country: US (occurrence: US)
  Receive Date: 20130919
  Receipt Date: 20131018
  Transmission Date: 20140711
  Serious: No
  Sender: FDA-Public Use
  Company Number: US-PFIZER INC-2013265550

PATIENT
  Age: 69 Year
  Sex: Male
  Weight: 90.7 kg

DRUGS (5)
  1. VIAGRA [Suspect]
     Indication: ERECTILE DYSFUNCTION
     Dosage: 25 MG, AS NEEDED
     Route: 048
  2. VIAGRA [Suspect]
     Dosage: 50 MG, UNK
     Route: 048
  3. VIAGRA [Suspect]
     Dosage: 100 MG, AS NEEDED
  4. ASPIRIN [Concomitant]
     Dosage: 81 MG, UNK
  5. GLUCOSAMINE HYDROCHLORIDE/CHONDROITIN SULFATE [Concomitant]
     Indication: ARTHRITIS
     Dosage: UNK

REACTIONS (2)
  - Drug effect decreased [Unknown]
  - Drug ineffective [Unknown]
